FAERS Safety Report 13393062 (Version 3)
Quarter: 2017Q4

REPORT INFORMATION
  Report Type: Spontaneous
  Country: EC (occurrence: EC)
  Receive Date: 20170331
  Receipt Date: 20171201
  Transmission Date: 20180320
  Serious: Yes (Hospitalization)
  Sender: FDA-Public Use
  Company Number: EC-NOVOPROD-537656

PATIENT
  Sex: Female
  Weight: 3.78 kg

DRUGS (6)
  1. REDOXON                            /00008001/ [Concomitant]
     Indication: VITAMIN SUPPLEMENTATION
     Dosage: UNK
     Route: 064
     Dates: end: 2017
  2. LEVEMIR [Suspect]
     Active Substance: INSULIN DETEMIR
     Indication: GESTATIONAL DIABETES
     Dosage: 12 IU, QD
     Route: 064
     Dates: start: 20161205, end: 2017
  3. NATALIE [Concomitant]
     Indication: VITAMIN SUPPLEMENTATION
     Dosage: UNK
     Route: 064
     Dates: end: 2017
  4. REDOXON                            /00008001/ [Concomitant]
     Indication: MINERAL SUPPLEMENTATION
  5. CALCIBON D [Concomitant]
     Indication: VITAMIN SUPPLEMENTATION
     Dosage: 1 TAB, QD
     Route: 064
     Dates: end: 2017
  6. NATALIE [Concomitant]
     Indication: MINERAL SUPPLEMENTATION

REACTIONS (2)
  - Foetal exposure during pregnancy [Recovered/Resolved]
  - Respiratory tract infection [Recovered/Resolved]

NARRATIVE: CASE EVENT DATE: 20161205
